FAERS Safety Report 4383437-9 (Version None)
Quarter: 2004Q2

REPORT INFORMATION
  Report Type: 
  Country: None (occurrence: None)
  Receive Date: 20040618
  Receipt Date: 20040601
  Transmission Date: 20050107
  Serious: Yes (Other)
  Sender: FDA-Public Use
  Company Number: FR_040604212

PATIENT

DRUGS (9)
  1. ALIMTA [Suspect]
     Indication: PLEURAL MESOTHELIOMA MALIGNANT
     Dosage: 500 MG/M2/1 OTHER
     Dates: start: 20040126
  2. VITAMIN B-12 [Concomitant]
  3. FOLIC ACID [Concomitant]
  4. PREDNISONE [Concomitant]
  5. FLECAINIDE ACETATE [Concomitant]
  6. ZESTORETIC [Concomitant]
  7. FELODIPINE [Concomitant]
  8. TANAKAN (GINKGO BILOBA EXTRACT) [Concomitant]
  9. OMEPRAZOLE [Concomitant]

REACTIONS (6)
  - ANAEMIA [None]
  - ANOREXIA [None]
  - ASTHENIA [None]
  - NEUTROPENIA [None]
  - THROMBOCYTOPENIA [None]
  - VOMITING [None]
